FAERS Safety Report 5806261-6 (Version None)
Quarter: 2008Q3

REPORT INFORMATION
  Report Type: 
  Country: None (occurrence: None)
  Receive Date: 20080710
  Receipt Date: 20080630
  Transmission Date: 20090109
  Serious: Yes (Other)
  Sender: FDA-Public Use
  Company Number: CA-GENENTECH-261868

PATIENT
  Sex: Female
  Weight: 55.5 kg

DRUGS (24)
  1. BLINDED BEVACIZUMAB [Suspect]
     Indication: DIFFUSE LARGE B-CELL LYMPHOMA
     Dosage: UNK, Q3W
     Route: 042
     Dates: start: 20080307
  2. CYCLOPHOSPHAMIDE [Suspect]
     Indication: DIFFUSE LARGE B-CELL LYMPHOMA
     Dosage: UNK, Q3W
     Route: 042
     Dates: start: 20080307
  3. DOXORUBICIN HCL [Suspect]
     Indication: DIFFUSE LARGE B-CELL LYMPHOMA
     Dosage: UNK, Q3W
     Route: 042
     Dates: start: 20080307
  4. BLINDED PLACEBO [Suspect]
     Indication: DIFFUSE LARGE B-CELL LYMPHOMA
     Dosage: UNK, Q3W
     Route: 042
     Dates: start: 20080307
  5. PREDNISONE [Suspect]
     Indication: DIFFUSE LARGE B-CELL LYMPHOMA
     Dosage: UNK, Q3W
     Route: 042
     Dates: start: 20080307
  6. BLINDED RITUXIMAB [Suspect]
     Indication: DIFFUSE LARGE B-CELL LYMPHOMA
     Dosage: UNK, Q3W
     Route: 042
     Dates: start: 20080307
  7. VINCRISTINE [Suspect]
     Indication: DIFFUSE LARGE B-CELL LYMPHOMA
     Dosage: UNK, Q3W
     Route: 042
     Dates: start: 20080307
  8. BLINDED BEVACIZUMAB [Suspect]
     Dosage: 860 MG, UNK
     Dates: start: 20080618
  9. CYCLOPHOSPHAMIDE [Suspect]
     Dosage: 860 MG, UNK
     Dates: start: 20080618
  10. DOXORUBICIN HCL [Suspect]
     Dosage: 860 MG, UNK
     Dates: start: 20080618
  11. BLINDED PLACEBO [Suspect]
     Dosage: 860 MG, UNK
     Dates: start: 20080618
  12. PREDNISONE [Suspect]
     Dosage: 860 MG, UNK
     Dates: start: 20080618
  13. BLINDED RITUXIMAB [Suspect]
     Dosage: 860 MG, UNK
     Dates: start: 20080618
  14. VINCRISTINE [Suspect]
     Dosage: 860 MG, UNK
     Dates: start: 20080618
  15. RITUXAN [Suspect]
     Indication: DIFFUSE LARGE B-CELL LYMPHOMA
     Dosage: 611 MG, Q3W
     Route: 042
     Dates: start: 20080304
  16. CYCLOPHOSPHAMIDE [Suspect]
     Indication: DIFFUSE LARGE B-CELL LYMPHOMA
     Dosage: 1220 MG, Q3W
     Route: 042
     Dates: start: 20080304
  17. VINCRISTINE [Suspect]
     Indication: DIFFUSE LARGE B-CELL LYMPHOMA
     Dosage: 2 MG, Q3W
     Route: 042
     Dates: start: 20080304
  18. DOXORUBICIN HCL [Suspect]
     Indication: DIFFUSE LARGE B-CELL LYMPHOMA
     Dosage: 81 MG, Q3W
     Route: 042
     Dates: start: 20080304
  19. PREDNISOLONE [Suspect]
     Indication: DIFFUSE LARGE B-CELL LYMPHOMA
     Dosage: 100 MG, UNKNOWN
     Route: 048
     Dates: start: 20080304
  20. MULTI-VITAMIN [Concomitant]
     Indication: DRUG USE FOR UNKNOWN INDICATION
     Dates: start: 20061215
  21. IMOVANE [Concomitant]
     Indication: DRUG USE FOR UNKNOWN INDICATION
     Dates: start: 20080326
  22. DOMPERIDONE [Concomitant]
     Indication: DRUG USE FOR UNKNOWN INDICATION
     Dates: start: 20080416
  23. BUDESONIDE [Concomitant]
     Indication: DRUG USE FOR UNKNOWN INDICATION
     Dates: start: 20040601
  24. ORAL CONTRACEPTIVE NOS [Concomitant]
     Indication: DRUG USE FOR UNKNOWN INDICATION
     Dates: start: 20020101

REACTIONS (1)
  - PULMONARY EMBOLISM [None]
